FAERS Safety Report 14977667 (Version 1)
Quarter: 2018Q2

REPORT INFORMATION
  Report Type: Spontaneous
  Country: CA (occurrence: CA)
  Receive Date: 20180606
  Receipt Date: 20180606
  Transmission Date: 20180711
  Serious: Yes (Other)
  Sender: FDA-Public Use
  Company Number: CA-UCBSA-2018023782

PATIENT
  Sex: Female

DRUGS (4)
  1. INH [Concomitant]
     Active Substance: ISONIAZID
     Indication: TUBERCULOSIS
  2. CIMZIA [Suspect]
     Active Substance: CERTOLIZUMAB PEGOL
     Indication: PRODUCT USED FOR UNKNOWN INDICATION
     Dosage: UNK
  3. SULFASALAZINE. [Concomitant]
     Active Substance: SULFASALAZINE
     Indication: PRODUCT USED FOR UNKNOWN INDICATION
     Dosage: 1000 MG, 2X/DAY (BID)
     Dates: end: 2016
  4. METHOTREXATE. [Concomitant]
     Active Substance: METHOTREXATE
     Indication: PRODUCT USED FOR UNKNOWN INDICATION
     Dosage: UNK
     Dates: start: 2009, end: 2010

REACTIONS (4)
  - Parotid abscess [Unknown]
  - Salivary gland cancer [Unknown]
  - Mycobacterium tuberculosis complex test positive [Unknown]
  - Cholecystitis [Unknown]
